FAERS Safety Report 11686927 (Version 2)
Quarter: 2016Q2

REPORT INFORMATION
  Report Type: Report from Study
  Country: US (occurrence: US)
  Receive Date: 20151030
  Receipt Date: 20160519
  Transmission Date: 20160815
  Serious: Yes (Life-Threatening, Hospitalization, Other)
  Sender: FDA-Public Use
  Company Number: US-MDT-ADR-2015-02053

PATIENT
  Age: 29 Year
  Sex: Female

DRUGS (6)
  1. HYDROMORPHONE [Suspect]
     Active Substance: HYDROMORPHONE
  2. CLONIDINE. [Suspect]
     Active Substance: CLONIDINE
     Route: 037
  3. FENTANYL TRANSDERMAL SYSTEM [Suspect]
     Active Substance: FENTANYL
     Route: 062
  4. COMPOUNDED BACLOFEN [Suspect]
     Active Substance: BACLOFEN
     Dosage: 53.4 MCG/HR
     Route: 037
  5. DILAUDID [Suspect]
     Active Substance: HYDROMORPHONE HYDROCHLORIDE
     Dosage: 0.0801 MG/HR
     Route: 037
  6. TORADOL [Suspect]
     Active Substance: KETOROLAC TROMETHAMINE

REACTIONS (3)
  - Unresponsive to stimuli [Unknown]
  - Overdose [Unknown]
  - Condition aggravated [Unknown]

NARRATIVE: CASE EVENT DATE: 20151023
